FAERS Safety Report 23549969 (Version 1)
Quarter: 2024Q1

REPORT INFORMATION
  Report Type: Spontaneous
  Country: IT (occurrence: IT)
  Receive Date: 20240221
  Receipt Date: 20240221
  Transmission Date: 20240410
  Serious: Yes (Other)
  Sender: FDA-Public Use
  Company Number: None

PATIENT
  Age: 64 Year
  Sex: Female

DRUGS (3)
  1. FLUOROURACIL [Suspect]
     Active Substance: FLUOROURACIL
     Indication: Colon cancer
     Dosage: 17TH CYCLE/1ST-2ND DAY TEVA FLUOROURACIL* 5G 100ML; IN BOLUS 300 MG IV, IN ELASTOMERIC PUMP 1,600...
     Route: 042
     Dates: start: 20230419
  2. IRINOTECAN [Suspect]
     Active Substance: IRINOTECAN
     Indication: Colon cancer
     Dosage: 17TH CYCLE/1ST DAY WITH IRINOTECAN MY* 1FL 5ML 20MG/ML; ADMINISTERED DOSE: 250 MG IV; FOLFIRI + B...
     Route: 042
     Dates: start: 20230419, end: 20231220
  3. VEGZELMA [Suspect]
     Active Substance: BEVACIZUMAB-ADCD
     Indication: Colon cancer
     Dosage: 17TH CYCLE/1ST DAY VEGZELMA* INF 1FL 4ML 25MG/ML; ADMINISTERED AT A DOSAGE OF 250 MG IV; PROTOCOL...
     Route: 042
     Dates: start: 20230419

REACTIONS (1)
  - Neutropenia [Not Recovered/Not Resolved]

NARRATIVE: CASE EVENT DATE: 20231220
